FAERS Safety Report 13274264 (Version 1)
Quarter: 2017Q1

REPORT INFORMATION
  Report Type: Spontaneous
  Country: JP (occurrence: JP)
  Receive Date: 20170227
  Receipt Date: 20170227
  Transmission Date: 20170428
  Serious: Yes (Death)
  Sender: FDA-Public Use
  Company Number: JP-MALLINCKRODT-T201700692

PATIENT
  Age: 60 Year
  Sex: Female
  Weight: 56 kg

DRUGS (16)
  1. METHADONE [Suspect]
     Active Substance: METHADONE HYDROCHLORIDE
     Dosage: 10 MG, DAILY DOSE 30 MG
     Route: 048
     Dates: start: 20150722, end: 20150813
  2. OXIFAST [Concomitant]
     Active Substance: OXYCODONE
     Indication: ANALGESIC THERAPY
     Dosage: 240 MG, UNK
     Route: 051
     Dates: start: 20150810, end: 20150814
  3. ETIZOLAM [Concomitant]
     Active Substance: ETIZOLAM
     Dosage: 1 MG, UNK
     Route: 048
     Dates: start: 20141209, end: 20150810
  4. METHADONE [Suspect]
     Active Substance: METHADONE HYDROCHLORIDE
     Dosage: 10 MG, DAILY DOSE 20 MG
     Route: 048
     Dates: start: 20150714, end: 20150721
  5. BENIDIPINE HYDROCHLORIDE [Concomitant]
     Active Substance: BENIDIPINE HYDROCHLORIDE
     Dosage: 4 MG, UNK
     Route: 048
     Dates: start: 20150107, end: 20150810
  6. LYRICA [Concomitant]
     Active Substance: PREGABALIN
     Indication: ANALGESIC THERAPY
     Dosage: 150 MG, UNK
     Route: 048
     Dates: start: 20150616, end: 20150810
  7. TAKEPRON [Concomitant]
     Active Substance: LANSOPRAZOLE
     Dosage: 15 MG, UNK
     Route: 048
     Dates: start: 20141124, end: 20150810
  8. ZOLPIDEM TARTRATE. [Concomitant]
     Active Substance: ZOLPIDEM TARTRATE
     Dosage: 5 MG, UNK
     Route: 048
     Dates: start: 20150520, end: 20150810
  9. NAUZELIN [Concomitant]
     Active Substance: DOMPERIDONE
     Dosage: 30 MG, UNK
     Route: 048
     Dates: start: 20150626, end: 20150810
  10. RINDERON V [Concomitant]
     Active Substance: BETAMETHASONE VALERATE
     Indication: ANALGESIC THERAPY
     Dosage: 4 MG, UNK
     Route: 051
     Dates: start: 20150810, end: 20150814
  11. KETALAR [Concomitant]
     Active Substance: KETAMINE HYDROCHLORIDE
     Indication: ANALGESIC THERAPY
     Dosage: 480 MG, UNK
     Route: 051
     Dates: start: 20150810, end: 20150814
  12. METHADONE [Suspect]
     Active Substance: METHADONE HYDROCHLORIDE
     Indication: CANCER PAIN
     Dosage: 5 MG, DAILY DOSE 15 MG
     Route: 048
     Dates: start: 20150630, end: 20150713
  13. OXINORM [Concomitant]
     Active Substance: OXYCODONE HYDROCHLORIDE
     Indication: ANALGESIC THERAPY
     Dosage: 10 MG, UNK
     Route: 048
     Dates: start: 20150629
  14. ROPION [Concomitant]
     Active Substance: FLURBIPROFEN AXETIL
     Indication: ANALGESIC THERAPY
     Dosage: 150 MG, UNK
     Route: 051
     Dates: start: 20150810, end: 20150814
  15. LOXOPROFEN [Concomitant]
     Active Substance: LOXOPROFEN
     Indication: ANALGESIC THERAPY
     Dosage: 180 MG, UNK
     Route: 048
     Dates: start: 20150119, end: 20150810
  16. MINOCYCLINE HYDROCHLORIDE. [Concomitant]
     Active Substance: MINOCYCLINE HYDROCHLORIDE
     Dosage: 100 MG, UNK
     Route: 048
     Dates: start: 20150620, end: 20150810

REACTIONS (1)
  - Rectal cancer [Fatal]

NARRATIVE: CASE EVENT DATE: 20150814
